FAERS Safety Report 15412833 (Version 2)
Quarter: 2018Q3

REPORT INFORMATION
  Report Type: Report from Study
  Country: DE (occurrence: DE)
  Receive Date: 20180921
  Receipt Date: 20180927
  Transmission Date: 20181010
  Serious: Yes (Hospitalization, Other)
  Sender: FDA-Public Use
  Company Number: DE-TEVA-2017-DE-836529

PATIENT
  Age: 50 Year
  Sex: Male
  Weight: 87 kg

DRUGS (25)
  1. XELODA [Suspect]
     Active Substance: CAPECITABINE
     Indication: COLORECTAL CANCER
     Dosage: PER DAY FOR 14 DAYS FOLLOWED BY A BREAK OF 7 DAYS.
     Route: 048
     Dates: start: 20160209, end: 20160223
  2. XELODA [Suspect]
     Active Substance: CAPECITABINE
     Route: 048
     Dates: start: 20160412, end: 20160425
  3. XELODA [Suspect]
     Active Substance: CAPECITABINE
     Route: 048
     Dates: start: 20160322
  4. XELODA [Suspect]
     Active Substance: CAPECITABINE
     Dosage: D1?14 FOLLOWED BY 7D PAUSE
     Route: 048
     Dates: start: 20160523, end: 20160526
  5. OXALIPLATIN. [Suspect]
     Active Substance: OXALIPLATIN
     Indication: COLORECTAL CANCER
     Dosage: DAILY DOSE: 262.6 MG MILLGRAM(S) EVERY 3 WEEKS
     Route: 042
     Dates: start: 20160301, end: 20160301
  6. CAPECITABINE. [Suspect]
     Active Substance: CAPECITABINE
     Route: 048
     Dates: start: 20160613, end: 20160615
  7. BEVACIZUMAB. [Suspect]
     Active Substance: BEVACIZUMAB
     Indication: COLORECTAL CANCER
     Dosage: LAST MOST RECENT DOSE PRIOR TO SAE WAS ON : 22/MAR/2016
     Route: 042
     Dates: start: 20160209, end: 20160209
  8. OXALIPLATIN. [Suspect]
     Active Substance: OXALIPLATIN
     Route: 042
     Dates: start: 20160613
  9. XELODA [Suspect]
     Active Substance: CAPECITABINE
     Route: 048
     Dates: start: 20160301, end: 20160314
  10. CAPECITABINE. [Suspect]
     Active Substance: CAPECITABINE
     Route: 048
     Dates: start: 20160209
  11. OXALIPLATIN. [Suspect]
     Active Substance: OXALIPLATIN
     Dosage: DAILY DOSE: 262.6 MG MILLGRAM(S) EVERY 3 WEEKS
     Route: 042
     Dates: start: 20160209, end: 20160209
  12. AVASTIN [Suspect]
     Active Substance: BEVACIZUMAB
     Dosage: LAST MOST RECENT DOSE PRIOR TO SAE WAS ON : 22/MAR/2016
     Route: 042
     Dates: start: 20160209, end: 20160209
  13. BEVACIZUMAB. [Suspect]
     Active Substance: BEVACIZUMAB
     Route: 042
     Dates: start: 20160818, end: 20160818
  14. OXALIPLATIN. [Suspect]
     Active Substance: OXALIPLATIN
     Route: 042
     Dates: start: 20160412, end: 20160412
  15. AVASTIN [Suspect]
     Active Substance: BEVACIZUMAB
     Indication: COLORECTAL CANCER
     Route: 042
     Dates: start: 20160818, end: 20160818
  16. CAPECITABINE. [Suspect]
     Active Substance: CAPECITABINE
     Indication: COLORECTAL CANCER
     Dosage: PER DAY FOR 14 DAYS FOLLOWED BY A BREAK OF 7 DAYS.
     Route: 048
     Dates: start: 20160322
  17. XELODA [Suspect]
     Active Substance: CAPECITABINE
     Route: 048
     Dates: start: 20160613, end: 20160615
  18. AVASTIN [Suspect]
     Active Substance: BEVACIZUMAB
     Route: 042
     Dates: start: 20160412
  19. CAPECITABINE. [Suspect]
     Active Substance: CAPECITABINE
     Route: 048
     Dates: start: 20160412
  20. TILIDIN [Concomitant]
     Active Substance: NALOXONE HYDROCHLORIDE\TILIDINE HYDROCHLORIDE
  21. OXALIPLATIN. [Suspect]
     Active Substance: OXALIPLATIN
     Dosage: DAILY DOSE: 262.6 MG MILLGRAM(S) EVERY 3 WEEKS
     Route: 042
     Dates: start: 20160322, end: 20160322
  22. OXALIPLATIN. [Suspect]
     Active Substance: OXALIPLATIN
     Route: 042
     Dates: start: 20160523
  23. CAPECITABINE. [Suspect]
     Active Substance: CAPECITABINE
     Route: 048
     Dates: start: 20160301, end: 20160314
  24. CAPECITABINE. [Suspect]
     Active Substance: CAPECITABINE
     Route: 048
     Dates: start: 20160523, end: 20160526
  25. BEVACIZUMAB. [Suspect]
     Active Substance: BEVACIZUMAB
     Route: 042
     Dates: start: 20160412, end: 20160412

REACTIONS (8)
  - Stoma site haemorrhage [Not Recovered/Not Resolved]
  - Stoma site haemorrhage [Recovered/Resolved]
  - Myalgia [Recovered/Resolved]
  - Myalgia [Recovered/Resolved]
  - Anaemia [Not Recovered/Not Resolved]
  - Nausea [Recovered/Resolved]
  - Fatigue [Recovered/Resolved]
  - Dyspnoea exertional [Recovered/Resolved]

NARRATIVE: CASE EVENT DATE: 20160210
